FAERS Safety Report 4290018-4 (Version None)
Quarter: 2004Q1

REPORT INFORMATION
  Report Type: 
  Country: None (occurrence: None)
  Receive Date: 20040209
  Receipt Date: 20030626
  Transmission Date: 20041129
  Serious: Yes (Hospitalization, Other)
  Sender: FDA-Public Use
  Company Number: USA030434985

PATIENT
  Sex: Female

DRUGS (1)
  1. EVISTA [Suspect]
     Indication: OSTEOPOROSIS
     Dosage: 60MG/DAY
     Dates: start: 20020612, end: 20030401

REACTIONS (5)
  - ANAEMIA [None]
  - DEEP VEIN THROMBOSIS [None]
  - GANGLION [None]
  - HYPOALBUMINAEMIA [None]
  - URINE LEUKOCYTE ESTERASE POSITIVE [None]
